FAERS Safety Report 8024940-X (Version None)
Quarter: 2012Q1

REPORT INFORMATION
  Report Type: 
  Country: None (occurrence: None)
  Receive Date: 20120105
  Receipt Date: 20111227
  Transmission Date: 20120608
  Serious: Yes (Other)
  Sender: FDA-Public Use
  Company Number: CHPA2011DE018868

PATIENT
  Age: 20 Year
  Sex: Male

DRUGS (1)
  1. IBUPROFEN [Suspect]
     Indication: NASOPHARYNGITIS
     Dosage: 1200 MG, QD
     Route: 048

REACTIONS (5)
  - NAIL DISORDER [None]
  - PAIN IN EXTREMITY [None]
  - ERYTHEMA [None]
  - BURNING SENSATION [None]
  - OEDEMA PERIPHERAL [None]
